FAERS Safety Report 5004029-4 (Version None)
Quarter: 2006Q2

REPORT INFORMATION
  Report Type: 
  Country: None (occurrence: None)
  Receive Date: 20060515
  Receipt Date: 20060515
  Transmission Date: 20061013
  Serious: No
  Sender: FDA-Public Use
  Company Number: None

PATIENT
  Age: 14 Year
  Sex: Male
  Weight: 63.5036 kg

DRUGS (1)
  1. SEROQUEL [Suspect]
     Indication: BIPOLAR DISORDER
     Dosage: 300MG TWICE A DAY PO
     Route: 048
     Dates: start: 20050205, end: 20051201

REACTIONS (4)
  - DYSKINESIA [None]
  - FEELING ABNORMAL [None]
  - PAIN IN EXTREMITY [None]
  - PARAESTHESIA [None]
